FAERS Safety Report 14579480 (Version 2)
Quarter: 2018Q2

REPORT INFORMATION
  Report Type: Spontaneous
  Country: DE (occurrence: DE)
  Receive Date: 20180227
  Receipt Date: 20180405
  Transmission Date: 20180711
  Serious: Yes (Hospitalization, Other)
  Sender: FDA-Public Use
  Company Number: DE-BAUSCH-BL-2018-005395

PATIENT
  Age: 79 Year
  Sex: Male

DRUGS (6)
  1. BENDAMUSTINE [Suspect]
     Active Substance: BENDAMUSTINE
     Indication: CHRONIC LYMPHOCYTIC LEUKAEMIA
     Dosage: FOUR CYCLES
     Route: 065
  2. PREDNISOLONE. [Suspect]
     Active Substance: PREDNISOLONE
     Indication: CHRONIC LYMPHOCYTIC LEUKAEMIA
     Dosage: FOUR CYCLES
     Route: 048
  3. MABTHERA [Suspect]
     Active Substance: RITUXIMAB
     Indication: AUTOIMMUNE HAEMOLYTIC ANAEMIA
  4. PREDNISOLONE. [Suspect]
     Active Substance: PREDNISOLONE
     Indication: AUTOIMMUNE HAEMOLYTIC ANAEMIA
  5. BENDAMUSTINE [Suspect]
     Active Substance: BENDAMUSTINE
     Indication: AUTOIMMUNE HAEMOLYTIC ANAEMIA
  6. MABTHERA [Suspect]
     Active Substance: RITUXIMAB
     Indication: CHRONIC LYMPHOCYTIC LEUKAEMIA
     Dosage: OVER 4 CYCLES
     Route: 065

REACTIONS (5)
  - Cytomegalovirus test positive [Recovered/Resolved]
  - Atypical pneumonia [Recovered/Resolved]
  - Pneumothorax [Unknown]
  - Pneumocystis jirovecii pneumonia [Recovered/Resolved]
  - Subcutaneous emphysema [Unknown]
